FAERS Safety Report 7518273-5 (Version None)
Quarter: 2011Q2

REPORT INFORMATION
  Report Type: 
  Country: None (occurrence: None)
  Receive Date: 20110601
  Receipt Date: 20110601
  Transmission Date: 20111010
  Serious: Yes (Disabling, Other)
  Sender: FDA-Public Use
  Company Number: None

PATIENT
  Age: 80 Year
  Sex: Female
  Weight: 46.7205 kg

DRUGS (2)
  1. PRADAXA [Suspect]
     Indication: CARDIAC DISORDER
     Dosage: 150 MG 1 CAPSULE 2 TIMES A DAY
     Dates: start: 20101206, end: 20110307
  2. PRADAXA [Suspect]
     Indication: ATRIAL FIBRILLATION
     Dosage: 150 MG 1 CAPSULE 2 TIMES A DAY
     Dates: start: 20101206, end: 20110307

REACTIONS (12)
  - PAIN IN EXTREMITY [None]
  - GAIT DISTURBANCE [None]
  - MUSCULAR WEAKNESS [None]
  - BACK PAIN [None]
  - OEDEMA PERIPHERAL [None]
  - ABDOMINAL PAIN UPPER [None]
  - SKIN EXFOLIATION [None]
  - FALL [None]
  - ASTHENIA [None]
  - SKIN DISCOLOURATION [None]
  - JOINT SWELLING [None]
  - GASTRIC HAEMORRHAGE [None]
